FAERS Safety Report 10473035 (Version 2)
Quarter: 2015Q1

REPORT INFORMATION
  Report Type: Spontaneous
  Country: US (occurrence: US)
  Receive Date: 20140924
  Receipt Date: 20150326
  Transmission Date: 20150720
  Serious: No
  Sender: FDA-Public Use
  Company Number: US-SA-2014SA081137

PATIENT
  Age: 36 Year
  Sex: Male

DRUGS (10)
  1. AUBAGIO [Suspect]
     Active Substance: TERIFLUNOMIDE
     Indication: MULTIPLE SCLEROSIS
     Route: 048
     Dates: start: 201312
  2. AUBAGIO [Suspect]
     Active Substance: TERIFLUNOMIDE
     Indication: MULTIPLE SCLEROSIS
     Route: 048
     Dates: end: 201409
  3. MINERALS NOS/VITAMINS NOS [Concomitant]
  4. BACLOFEN. [Concomitant]
     Active Substance: BACLOFEN
  5. DITROPAN [Concomitant]
     Active Substance: OXYBUTYNIN CHLORIDE
  6. TEGRETOL [Concomitant]
     Active Substance: CARBAMAZEPINE
  7. LIPITOR [Concomitant]
     Active Substance: ATORVASTATIN CALCIUM
  8. IBUPROFEN. [Concomitant]
     Active Substance: IBUPROFEN
  9. GABAPENTIN. [Concomitant]
     Active Substance: GABAPENTIN
  10. TECFIDERA [Concomitant]
     Active Substance: DIMETHYL FUMARATE
     Dosage: 240 MG

REACTIONS (10)
  - Muscle spasms [Unknown]
  - Erythema [Recovered/Resolved]
  - Blood pressure increased [Unknown]
  - Blood glucose increased [Unknown]
  - Hepatic enzyme increased [Unknown]
  - Faeces hard [Unknown]
  - Flushing [Recovered/Resolved]
  - Tooth discolouration [Unknown]
  - Constipation [Unknown]
  - Dental caries [Unknown]

NARRATIVE: CASE EVENT DATE: 201312
